FAERS Safety Report 9478215 (Version 2)
Quarter: 2013Q3

REPORT INFORMATION
  Report Type: Spontaneous
  Country: CA (occurrence: CA)
  Receive Date: 20130827
  Receipt Date: 20130911
  Transmission Date: 20140515
  Serious: Yes (Other)
  Sender: FDA-Public Use
  Company Number: CA-PFIZER INC-2013245396

PATIENT
  Age: 47 Year
  Sex: Female

DRUGS (1)
  1. TOVIAZ [Suspect]
     Indication: HYPERTONIC BLADDER
     Dosage: 8 MG, 1X/DAY
     Route: 048
     Dates: start: 201304, end: 201306

REACTIONS (1)
  - Faecaloma [Recovered/Resolved]
